FAERS Safety Report 6210685-5 (Version None)
Quarter: 2009Q2

REPORT INFORMATION
  Report Type: 
  Country: None (occurrence: None)
  Receive Date: 20090528
  Receipt Date: 20090528
  Transmission Date: 20091009
  Serious: Yes (Other)
  Sender: FDA-Public Use
  Company Number: None

PATIENT
  Age: 50 Year
  Sex: Female
  Weight: 117.9352 kg

DRUGS (1)
  1. MIDAZOLAM HCL [Suspect]
     Indication: COLONOSCOPY
     Dates: start: 20090521, end: 20090521

REACTIONS (4)
  - DRUG INEFFECTIVE [None]
  - LACRIMATION INCREASED [None]
  - NASAL DISCOMFORT [None]
  - RHINORRHOEA [None]
